FAERS Safety Report 5760512-5 (Version None)
Quarter: 2008Q2

REPORT INFORMATION
  Report Type: 
  Country: None (occurrence: None)
  Receive Date: 20080602
  Receipt Date: 20080519
  Transmission Date: 20081010
  Serious: Yes (Hospitalization)
  Sender: FDA-Public Use
  Company Number: 2008BI013041

PATIENT
  Sex: Female

DRUGS (1)
  1. AVONEX [Suspect]
     Indication: MULTIPLE SCLEROSIS
     Dosage: ;IM
     Route: 030
     Dates: start: 20020323, end: 20080504

REACTIONS (12)
  - ARTHRITIS [None]
  - CHEST DISCOMFORT [None]
  - CONDITION AGGRAVATED [None]
  - DEVICE BREAKAGE [None]
  - FACIAL PALSY [None]
  - GAIT DISTURBANCE [None]
  - IMMOBILE [None]
  - MULTIPLE SCLEROSIS [None]
  - MUSCLE SPASTICITY [None]
  - OSTEOMYELITIS [None]
  - SURGICAL PROCEDURE REPEATED [None]
  - TENDON RUPTURE [None]
